FAERS Safety Report 6375562-8 (Version None)
Quarter: 2009Q3

REPORT INFORMATION
  Report Type: 
  Country: None (occurrence: None)
  Receive Date: 20090924
  Receipt Date: 20090921
  Transmission Date: 20100115
  Serious: Yes (Disabling)
  Sender: FDA-Public Use
  Company Number: US-MERCK-0909USA03114

PATIENT
  Age: 90 Year
  Sex: Female

DRUGS (2)
  1. VYTORIN [Suspect]
     Indication: BLOOD CHOLESTEROL INCREASED
     Route: 048
     Dates: start: 20040101
  2. LOPRESSOR [Concomitant]
     Route: 065

REACTIONS (3)
  - ACTIVITIES OF DAILY LIVING IMPAIRED [None]
  - GAIT DISTURBANCE [None]
  - MYOPATHY [None]
